FAERS Safety Report 9700001 (Version 1)
Quarter: 2013Q4

REPORT INFORMATION
  Report Type: Spontaneous
  Country: US (occurrence: US)
  Receive Date: 20131121
  Receipt Date: 20131121
  Transmission Date: 20140711
  Serious: No
  Sender: FDA-Public Use
  Company Number: US-BIOGENIDEC-2013BI109438

PATIENT
  Age: 63 Year
  Sex: Female

DRUGS (1)
  1. TYSABRI [Suspect]
     Indication: MULTIPLE SCLEROSIS
     Route: 042
     Dates: start: 20110708, end: 20130819

REACTIONS (4)
  - Head injury [Unknown]
  - Fall [Recovered/Resolved]
  - Hypersomnia [Not Recovered/Not Resolved]
  - Somnolence [Not Recovered/Not Resolved]
